FAERS Safety Report 21301581 (Version 6)
Quarter: 2023Q1

REPORT INFORMATION
  Report Type: Report from Study
  Country: CN (occurrence: None)
  Receive Date: 20220907
  Receipt Date: 20230105
  Transmission Date: 20230418
  Serious: Yes (Hospitalization)
  Sender: FDA-Public Use
  Company Number: CN-ROCHE-3171405

PATIENT
  Age: 59 Year
  Sex: Male
  Weight: 76 kg

DRUGS (24)
  1. TIRAGOLUMAB [Suspect]
     Active Substance: TIRAGOLUMAB
     Indication: Metastatic gastric cancer
     Dosage: DATE OF MOST RECENT DOSE PRIOR TO SAE ONSET: 11/AUG/2022?DATE OF MOST RECENT DOSE PRIOR TO SAE ONSET
     Route: 042
     Dates: start: 20210812, end: 20220128
  2. TIRAGOLUMAB [Suspect]
     Active Substance: TIRAGOLUMAB
     Indication: Human epidermal growth factor receptor negative
     Dosage: DATE OF MOST RECENT DOSE PRIOR TO SAE ONSET: 11/AUG/2022
     Route: 042
     Dates: start: 20220222, end: 20220830
  3. TIRAGOLUMAB [Suspect]
     Active Substance: TIRAGOLUMAB
     Indication: Oesophageal adenocarcinoma
     Route: 042
     Dates: start: 20220916, end: 20220916
  4. ATEZOLIZUMAB [Suspect]
     Active Substance: ATEZOLIZUMAB
     Indication: Oesophageal adenocarcinoma
     Dosage: DATE OF MOST RECENT DOSE PRIOR TO SAE ONSET: 11/AUG/2022?DATE OF MOST RECENT DOSE PRIOR TO SAE ONSET
     Route: 041
     Dates: start: 20210812, end: 20220128
  5. ATEZOLIZUMAB [Suspect]
     Active Substance: ATEZOLIZUMAB
     Indication: Metastatic gastric cancer
     Dosage: DATE OF MOST RECENT DOSE PRIOR TO SAE ONSET: 11/AUG/2022
     Route: 041
     Dates: start: 20220222, end: 20220830
  6. ATEZOLIZUMAB [Suspect]
     Active Substance: ATEZOLIZUMAB
     Indication: Human epidermal growth factor receptor negative
     Route: 041
     Dates: start: 20220916, end: 20220916
  7. OXALIPLATIN [Suspect]
     Active Substance: OXALIPLATIN
     Indication: Oesophageal adenocarcinoma
     Dosage: DATE OF MOST RECENT DOSE PRIOR TO SAE 10/JAN/2022
     Route: 041
     Dates: start: 20210812
  8. OXALIPLATIN [Suspect]
     Active Substance: OXALIPLATIN
     Indication: Metastatic gastric cancer
  9. OXALIPLATIN [Suspect]
     Active Substance: OXALIPLATIN
     Indication: Human epidermal growth factor receptor negative
  10. CAPECITABINE [Suspect]
     Active Substance: CAPECITABINE
     Indication: Oesophageal adenocarcinoma
     Dosage: TWICE DAILY ON DAYS 1-14, REPEATED EVERY 3 WEEKS
     Route: 048
     Dates: start: 20210812
  11. CAPECITABINE [Suspect]
     Active Substance: CAPECITABINE
     Indication: Metastatic gastric cancer
  12. CAPECITABINE [Suspect]
     Active Substance: CAPECITABINE
     Indication: Human epidermal growth factor receptor negative
  13. METFORMIN HYDROCHLORIDE [Concomitant]
     Active Substance: METFORMIN HYDROCHLORIDE
     Dates: start: 20210812
  14. DAPAGLIFLOZIN [Concomitant]
     Active Substance: DAPAGLIFLOZIN
     Dates: start: 20220812
  15. OXYCODONE [Concomitant]
     Active Substance: OXYCODONE
     Dates: start: 20210610
  16. ACETAMINOPHEN [Concomitant]
     Active Substance: ACETAMINOPHEN
     Dates: start: 20210610
  17. ESTAZOLAM [Concomitant]
     Active Substance: ESTAZOLAM
     Dates: start: 20210813
  18. DENOSUMAB [Concomitant]
     Active Substance: DENOSUMAB
     Dates: start: 20220215, end: 20220215
  19. DENOSUMAB [Concomitant]
     Active Substance: DENOSUMAB
     Dates: start: 20220916, end: 20220916
  20. INSULIN ASPART [Concomitant]
     Active Substance: INSULIN ASPART
     Dosage: 36 U (UNITS)
     Dates: start: 20220824
  21. OXYCODONE AND ACETAMINOPHEN [Concomitant]
     Active Substance: ACETAMINOPHEN\OXYCODONE HYDROCHLORIDE
     Dates: start: 20220610
  22. DOXOFYLLINE [Concomitant]
     Active Substance: DOXOFYLLINE
  23. MOXIFLOXACIN HYDROCHLORIDE [Concomitant]
     Active Substance: MOXIFLOXACIN HYDROCHLORIDE
  24. CEFTIZOXIME SODIUM [Concomitant]
     Active Substance: CEFTIZOXIME SODIUM

REACTIONS (3)
  - Type 2 diabetes mellitus [Not Recovered/Not Resolved]
  - Immune-mediated lung disease [Recovering/Resolving]
  - Hyperthyroidism [Recovered/Resolved]

NARRATIVE: CASE EVENT DATE: 20220128
